FAERS Safety Report 4338110-X (Version None)
Quarter: 2004Q2

REPORT INFORMATION
  Report Type: 
  Country: None (occurrence: None)
  Receive Date: 20040407
  Receipt Date: 20040330
  Transmission Date: 20050107
  Serious: Yes (Hospitalization)
  Sender: FDA-Public Use
  Company Number: 2004-04-0064

PATIENT
  Sex: Female

DRUGS (1)
  1. DESALEX (DESLORATADINE) SYRUP   LIKE CLARINEX [Suspect]
     Dosage: ORAL
     Route: 048

REACTIONS (4)
  - CHILLS [None]
  - HYPOTENSION [None]
  - PALLOR [None]
  - TACHYCARDIA [None]
